FAERS Safety Report 7369567-8 (Version None)
Quarter: 2011Q1

REPORT INFORMATION
  Report Type: 
  Country: None (occurrence: None)
  Receive Date: 20110323
  Receipt Date: 20110321
  Transmission Date: 20110831
  Serious: Yes (Hospitalization)
  Sender: FDA-Public Use
  Company Number: PL-ABBOTT-11P-129-0710104-00

PATIENT
  Sex: Female

DRUGS (1)
  1. VALPROIC ACID [Suspect]
     Indication: INTENTIONAL OVERDOSE
     Dosage: ONCE

REACTIONS (2)
  - INTENTIONAL OVERDOSE [None]
  - DRUG LEVEL ABOVE THERAPEUTIC [None]
